FAERS Safety Report 15947083 (Version 2)
Quarter: 2025Q1

REPORT INFORMATION
  Report Type: Spontaneous
  Country: US (occurrence: US)
  Receive Date: 20190211
  Receipt Date: 20250207
  Transmission Date: 20250408
  Serious: No
  Sender: PFIZER
  Company Number: US-PFIZER INC-2019058934

PATIENT
  Age: 44 Year
  Sex: Male

DRUGS (1)
  1. SOMAVERT [Suspect]
     Active Substance: PEGVISOMANT
     Indication: Hypopituitarism
     Dosage: 15 MG, DAILY

REACTIONS (3)
  - Blood thyroid stimulating hormone decreased [Unknown]
  - Blood urea increased [Unknown]
  - Blood testosterone decreased [Unknown]
